FAERS Safety Report 19926869 (Version 1)
Quarter: 2021Q4

REPORT INFORMATION
  Report Type: Spontaneous
  Country: US (occurrence: US)
  Receive Date: 20211007
  Receipt Date: 20211007
  Transmission Date: 20220303
  Serious: No
  Sender: FDA-Public Use
  Company Number: 2021A760428

PATIENT
  Age: 29822 Day
  Sex: Male
  Weight: 100.7 kg

DRUGS (1)
  1. ACLIDINIUM BROMIDE\FORMOTEROL FUMARATE [Suspect]
     Active Substance: ACLIDINIUM BROMIDE\FORMOTEROL FUMARATE
     Indication: Chronic obstructive pulmonary disease
     Dosage: 1 PUFF
     Route: 055

REACTIONS (4)
  - Secretion discharge [Unknown]
  - Dysphonia [Unknown]
  - Incorrect dose administered [Unknown]
  - Device issue [Unknown]

NARRATIVE: CASE EVENT DATE: 20210930
